FAERS Safety Report 7067951-3 (Version None)
Quarter: 2010Q4

REPORT INFORMATION
  Report Type: 
  Country: None (occurrence: None)
  Receive Date: 20101027
  Receipt Date: 20101027
  Transmission Date: 20110411
  Serious: Yes (Disabling)
  Sender: FDA-Public Use
  Company Number: None

PATIENT
  Age: 32 Year
  Sex: Female
  Weight: 84.8226 kg

DRUGS (2)
  1. PREDNISONE [Suspect]
     Indication: TENDONITIS
     Dosage: 10MG 4-5 D, 2-3 D, 1-3  PO
     Route: 048
     Dates: start: 20100420, end: 20100501
  2. METHYLPREDNISOLONE [Suspect]
     Indication: EPICONDYLITIS
     Dosage: 4MG DOSE PACK PO
     Route: 048
     Dates: start: 20100811, end: 20100816

REACTIONS (1)
  - BENIGN INTRACRANIAL HYPERTENSION [None]
